FAERS Safety Report 4578782-8 (Version None)
Quarter: 2005Q1

REPORT INFORMATION
  Report Type: 
  Country: None (occurrence: None)
  Receive Date: 20050211
  Receipt Date: 20050131
  Transmission Date: 20050727
  Serious: Yes (Hospitalization)
  Sender: FDA-Public Use
  Company Number: FR-JNJFOC-20050202157

PATIENT
  Age: 86 Year
  Sex: Female

DRUGS (16)
  1. IXPRIM [Suspect]
     Indication: DRUG USE FOR UNKNOWN INDICATION
     Route: 049
  2. CELEBREX [Suspect]
     Indication: DRUG USE FOR UNKNOWN INDICATION
     Route: 049
  3. PREVISCAN [Interacting]
     Indication: DRUG USE FOR UNKNOWN INDICATION
     Route: 049
  4. FUROSEMIDE [Concomitant]
     Route: 049
  5. FUROSEMIDE [Concomitant]
     Route: 049
  6. TRIATEC [Concomitant]
     Route: 049
  7. ATENOLOL [Concomitant]
     Route: 049
  8. ALDACTONE [Concomitant]
     Route: 049
  9. STILNOX [Concomitant]
     Route: 049
  10. DAFLON [Concomitant]
     Route: 049
  11. TRIMETAZIDINE [Concomitant]
     Route: 049
  12. DITROPAN [Concomitant]
     Route: 049
  13. IKOREL [Concomitant]
     Route: 049
  14. FORLAX [Concomitant]
     Route: 049
  15. ACTISKENAN [Concomitant]
     Route: 049
  16. KAYEXALATE [Concomitant]
     Route: 049

REACTIONS (14)
  - BLOOD CREATININE INCREASED [None]
  - DRUG INTERACTION [None]
  - FALL [None]
  - GASTRIC ULCER [None]
  - HAEMATOMA [None]
  - HAEMOGLOBIN DECREASED [None]
  - INTERNATIONAL NORMALISED RATIO INCREASED [None]
  - MALAISE [None]
  - MELAENA [None]
  - PROTHROMBIN LEVEL DECREASED [None]
  - PROTHROMBIN TIME PROLONGED [None]
  - RENAL FAILURE ACUTE [None]
  - SOMNOLENCE [None]
  - TRAUMATIC HAEMATOMA [None]
